FAERS Safety Report 10963513 (Version 1)
Quarter: 2015Q1

REPORT INFORMATION
  Report Type: Spontaneous
  Country: CA (occurrence: None)
  Receive Date: 20150326
  Receipt Date: 20150326
  Transmission Date: 20150721
  Serious: Yes (Hospitalization)
  Sender: FDA-Public Use
  Company Number: 2792576

PATIENT
  Age: 41 Year
  Sex: Female

DRUGS (4)
  1. SODIUM CHLORIDE. [Suspect]
     Active Substance: SODIUM CHLORIDE
     Indication: PULMONARY ARTERIAL HYPERTENSION
     Route: 051
  2. GLYCINE. [Suspect]
     Active Substance: GLYCINE
     Indication: PULMONARY ARTERIAL HYPERTENSION
     Route: 051
  3. MANNITOL. [Suspect]
     Active Substance: MANNITOL
     Indication: PULMONARY ARTERIAL HYPERTENSION
     Route: 051
  4. FLOLAN [Suspect]
     Active Substance: EPOPROSTENOL SODIUM
     Indication: PULMONARY ARTERIAL HYPERTENSION
     Route: 051

REACTIONS (2)
  - Dyspnoea [None]
  - Ascites [None]
